FAERS Safety Report 11988012 (Version 1)
Quarter: 2016Q1

REPORT INFORMATION
  Report Type: Spontaneous
  Country: JP (occurrence: JP)
  Receive Date: 20160202
  Receipt Date: 20160202
  Transmission Date: 20160526
  Serious: Yes (Death, Other)
  Sender: FDA-Public Use
  Company Number: JP-ASTELLAS-2016US003409

PATIENT
  Age: 47 Year
  Sex: Male

DRUGS (2)
  1. AMBISOME [Suspect]
     Active Substance: AMPHOTERICIN B
     Indication: LYMPHOMA
     Dosage: UNK UNK, UNKNOWN FREQ.
     Route: 065
  2. IMIPENEM/CILASTATIN ACTAVIS [Suspect]
     Active Substance: CILASTATIN SODIUM\IMIPENEM
     Indication: LYMPHOMA
     Dosage: UNK UNK, UNKNOWN FREQ.
     Route: 065

REACTIONS (3)
  - Respiratory failure [Fatal]
  - Off label use [Unknown]
  - Stevens-Johnson syndrome [Recovering/Resolving]
